FAERS Safety Report 7313285-9 (Version None)
Quarter: 2011Q1

REPORT INFORMATION
  Report Type: 
  Country: None (occurrence: None)
  Receive Date: 20110225
  Receipt Date: 20110218
  Transmission Date: 20110831
  Serious: Yes (Hospitalization, Other)
  Sender: FDA-Public Use
  Company Number: US-GENZYME-CERZ-1001229

PATIENT
  Sex: Female

DRUGS (1)
  1. CEREZYME [Suspect]
     Indication: GAUCHER'S DISEASE

REACTIONS (6)
  - DISEASE PROGRESSION [None]
  - PAIN [None]
  - INFECTION [None]
  - COLON CANCER [None]
  - NEUROPATHY PERIPHERAL [None]
  - PERITONITIS [None]
